FAERS Safety Report 7327076-6 (Version None)
Quarter: 2011Q1

REPORT INFORMATION
  Report Type: 
  Country: None (occurrence: None)
  Receive Date: 20110302
  Receipt Date: 20110228
  Transmission Date: 20110831
  Serious: Yes (Other)
  Sender: FDA-Public Use
  Company Number: US-ABBOTT-11P-163-0707922-00

PATIENT
  Sex: Male
  Weight: 88.53 kg

DRUGS (5)
  1. OMEPRAZOLE [Concomitant]
     Indication: GASTROOESOPHAGEAL REFLUX DISEASE
  2. HUMIRA [Suspect]
     Indication: PSORIATIC ARTHROPATHY
     Dates: start: 20080101, end: 20100101
  3. UNKNOWN CHOLESTEROL [Concomitant]
     Indication: BLOOD CHOLESTEROL INCREASED
  4. BENAZEPRIL [Concomitant]
     Indication: HYPERTENSION
  5. ASPIRIN [Concomitant]
     Indication: CARDIAC DISORDER

REACTIONS (4)
  - BRONCHITIS [None]
  - COUGH [None]
  - DYSPNOEA [None]
  - JOINT SWELLING [None]
